FAERS Safety Report 9928311 (Version 1)
Quarter: 2014Q1

REPORT INFORMATION
  Report Type: Spontaneous
  Country: US (occurrence: None)
  Receive Date: 20140226
  Receipt Date: 20140226
  Transmission Date: 20141002
  Serious: Yes (Other)
  Sender: FDA-Public Use
  Company Number: None

PATIENT
  Age: 40 Year
  Sex: Female
  Weight: 15.88 kg

DRUGS (1)
  1. QVAR [Suspect]
     Indication: ASTHMA PROPHYLAXIS
     Route: 055
     Dates: start: 20131031, end: 20140222

REACTIONS (6)
  - Mood altered [None]
  - Oppositional defiant disorder [None]
  - Depressed mood [None]
  - Psychomotor hyperactivity [None]
  - Enuresis [None]
  - Off label use [None]
